FAERS Safety Report 24425518 (Version 4)
Quarter: 2024Q4

REPORT INFORMATION
  Report Type: Report from Study
  Country: US (occurrence: US)
  Receive Date: 20241011
  Receipt Date: 20241104
  Transmission Date: 20250115
  Serious: Yes (Other)
  Sender: ABBVIE
  Company Number: US-ABBVIE-5954992

PATIENT
  Age: 49 Year
  Sex: Female
  Weight: 77 kg

DRUGS (1)
  1. SKYRIZI [Suspect]
     Active Substance: RISANKIZUMAB-RZAA
     Indication: Crohn^s disease
     Dosage: 360 MILLIGRAM
     Route: 058
     Dates: start: 20220908

REACTIONS (10)
  - Impaired healing [Not Recovered/Not Resolved]
  - Diverticulitis [Recovering/Resolving]
  - Exostosis [Unknown]
  - Red blood cell sedimentation rate increased [Unknown]
  - Arthritis [Unknown]
  - Wound dehiscence [Unknown]
  - Fluid retention [Not Recovered/Not Resolved]
  - C-reactive protein increased [Unknown]
  - Inflammatory marker increased [Not Recovered/Not Resolved]
  - Arthritis infective [Unknown]

NARRATIVE: CASE EVENT DATE: 20240805
